FAERS Safety Report 5301331-3 (Version None)
Quarter: 2007Q2

REPORT INFORMATION
  Report Type: 
  Country: None (occurrence: None)
  Receive Date: 20070418
  Receipt Date: 20070410
  Transmission Date: 20071010
  Serious: Yes (Death, Hospitalization)
  Sender: FDA-Public Use
  Company Number: AU-PFIZER INC-2007028735

PATIENT
  Age: 39 Year
  Sex: Male

DRUGS (4)
  1. HALOPERIDOL [Suspect]
  2. LITHIUM CARBONATE [Suspect]
  3. AMITRIPTYLINE HCL [Suspect]
     Dosage: DAILY DOSE:200MG
  4. VALPROATE SODIUM [Suspect]

REACTIONS (5)
  - ANTIDEPRESSANT DRUG LEVEL INCREASED [None]
  - ANTIPSYCHOTIC DRUG LEVEL BELOW THERAPEUTIC [None]
  - BRUGADA SYNDROME [None]
  - DEATH [None]
  - MANIA [None]
